FAERS Safety Report 25111349 (Version 3)
Quarter: 2025Q4

REPORT INFORMATION
  Report Type: Spontaneous
  Country: JP (occurrence: JP)
  Receive Date: 20250324
  Receipt Date: 20251017
  Transmission Date: 20260117
  Serious: Yes (Other)
  Sender: VERICEL
  Company Number: JP-VERICEL-JP-VCEL-25-000072

PATIENT
  Age: 74 Year
  Sex: Male
  Weight: 50 kg

DRUGS (5)
  1. BROMELAINS [Suspect]
     Active Substance: BROMELAINS
     Indication: Burns third degree
     Dosage: 5 GRAM, SINGLE
     Route: 061
     Dates: start: 20240724, end: 20240724
  2. BROMELAINS [Suspect]
     Active Substance: BROMELAINS
     Indication: Burns second degree
  3. PRECEDEX [Concomitant]
     Active Substance: DEXMEDETOMIDINE HYDROCHLORIDE
     Indication: Product used for unknown indication
     Dosage: UNK
     Route: 041
  4. FENTANYL [Concomitant]
     Active Substance: FENTANYL
     Indication: Product used for unknown indication
     Route: 041
  5. NOREPINEPHRINE BITARTRATE [Concomitant]
     Active Substance: NOREPINEPHRINE BITARTRATE
     Indication: Product used for unknown indication
     Route: 041

REACTIONS (2)
  - Muscle necrosis [Recovering/Resolving]
  - Haemorrhage subcutaneous [Recovering/Resolving]

NARRATIVE: CASE EVENT DATE: 20240724
